FAERS Safety Report 8797813 (Version 9)
Quarter: 2016Q4

REPORT INFORMATION
  Report Type: Spontaneous
  Country: US (occurrence: US)
  Receive Date: 20120920
  Receipt Date: 20161108
  Transmission Date: 20170207
  Serious: Yes (Hospitalization, Congenital Anomaly, Other)
  Sender: FDA-Public Use
  Company Number: US-PFIZER INC-2012232378

PATIENT
  Sex: Female
  Weight: 3 kg

DRUGS (14)
  1. PREVACID [Concomitant]
     Active Substance: LANSOPRAZOLE
     Dosage: 30 MG, DAILY
     Route: 064
     Dates: start: 20101115
  2. ACETAMINOPHEN WITH CODEINE #3 [Concomitant]
     Dosage: 50 MG, UNK
     Route: 064
     Dates: start: 20100827
  3. SERTRALINE HCL [Suspect]
     Active Substance: SERTRALINE HYDROCHLORIDE
     Dosage: 50 MG, 1X/DAY (AT NIGHT)
     Route: 064
     Dates: start: 20101123
  4. ONDANSETRON [Concomitant]
     Active Substance: ONDANSETRON
     Dosage: 8 MG, 1X/DAY
     Route: 064
     Dates: start: 20101117
  5. TYLENOL WITH CODEINE [Concomitant]
     Active Substance: ACETAMINOPHEN\CODEINE PHOSPHATE
     Indication: HEADACHE
     Dosage: 300-30 MG ONE TABLET, 3X/DAY (EVERY 8 HOURS AS NEEDED)
     Route: 064
  6. ZOLOFT [Suspect]
     Active Substance: SERTRALINE HYDROCHLORIDE
     Indication: ANXIETY DISORDER
     Dosage: 25 MG, 1X/DAY
     Route: 064
     Dates: start: 20101028
  7. ZOLOFT [Suspect]
     Active Substance: SERTRALINE HYDROCHLORIDE
     Dosage: UNK
     Route: 064
     Dates: start: 20110119
  8. ONDANSETRON [Concomitant]
     Active Substance: ONDANSETRON
     Dosage: 8 MG, AS DIRECTED
     Route: 064
     Dates: start: 20101215
  9. VITAMIN B6 [Concomitant]
     Active Substance: PYRIDOXINE HYDROCHLORIDE
     Dosage: 25 MG, 3X/DAY
     Route: 064
     Dates: start: 20101115
  10. ZOLOFT [Suspect]
     Active Substance: SERTRALINE HYDROCHLORIDE
     Indication: DEPRESSION
     Dosage: 50 MG, 1X/DAY
     Route: 064
     Dates: start: 20101123
  11. LANSOPRAZOLE. [Concomitant]
     Active Substance: LANSOPRAZOLE
     Dosage: 30 MG, 1X/DAY
     Route: 064
     Dates: start: 20101115
  12. ZOFRON [Concomitant]
     Active Substance: ONDANSETRON
     Dosage: UNK
     Route: 064
     Dates: start: 20110119
  13. PRENATAL VITAMINS [Concomitant]
     Active Substance: VITAMINS
     Dosage: UNK
     Route: 064
     Dates: start: 20101115
  14. MACROBID [Concomitant]
     Active Substance: NITROFURANTOIN\NITROFURANTOIN MONOHYDRATE
     Dosage: 100 MG, 2X/DAY
     Route: 064
     Dates: start: 20101115

REACTIONS (3)
  - Fallot^s tetralogy [Unknown]
  - Maternal exposure timing unspecified [Unknown]
  - Pulmonary artery atresia [Unknown]
